FAERS Safety Report 11783576 (Version 1)
Quarter: 2015Q4

REPORT INFORMATION
  Report Type: Spontaneous
  Country: GB (occurrence: GB)
  Receive Date: 20151127
  Receipt Date: 20151127
  Transmission Date: 20160305
  Serious: Yes (Other)
  Sender: FDA-Public Use
  Company Number: GB-ASTRAZENECA-2015SF12958

PATIENT
  Age: 84 Year
  Sex: Male
  Weight: 90 kg

DRUGS (16)
  1. LISINOPRIL. [Concomitant]
     Active Substance: LISINOPRIL
     Indication: ATRIAL FIBRILLATION
  2. LYXUMIA [Suspect]
     Active Substance: LIXISENATIDE
     Indication: TYPE 2 DIABETES MELLITUS
     Route: 058
     Dates: end: 2015
  3. WARFARIN [Concomitant]
     Active Substance: WARFARIN
     Indication: HYPERTENSION
  4. FORXIGA [Suspect]
     Active Substance: DAPAGLIFLOZIN
     Route: 048
  5. LYXUMIA [Suspect]
     Active Substance: LIXISENATIDE
     Indication: TYPE 2 DIABETES MELLITUS
     Route: 058
  6. GLICLAZIDE [Concomitant]
     Active Substance: GLICLAZIDE
     Indication: TYPE 2 DIABETES MELLITUS
  7. LYXUMIA [Suspect]
     Active Substance: LIXISENATIDE
     Indication: TYPE 2 DIABETES MELLITUS
     Dosage: COMBINED THERAPY: 1 DAY 20 MCG LIXISENATIDE AND 5 MG FORXIGA
     Route: 058
  8. LYXUMIA [Suspect]
     Active Substance: LIXISENATIDE
     Indication: TYPE 2 DIABETES MELLITUS
     Dosage: 10 MCG PER DAY FOR 2 WEEKS AND THEN 20 MCG PER DAY
     Route: 058
  9. FORXIGA [Suspect]
     Active Substance: DAPAGLIFLOZIN
     Route: 048
  10. FORXIGA [Suspect]
     Active Substance: DAPAGLIFLOZIN
     Route: 048
  11. GLUCOSAMINE [Concomitant]
     Active Substance: GLUCOSAMINE
  12. METFORMIN [Concomitant]
     Active Substance: METFORMIN HYDROCHLORIDE
     Indication: TYPE 2 DIABETES MELLITUS
  13. WARFARIN [Concomitant]
     Active Substance: WARFARIN
     Indication: ATRIAL FIBRILLATION
  14. LYXUMIA [Suspect]
     Active Substance: LIXISENATIDE
     Indication: TYPE 2 DIABETES MELLITUS
     Dosage: BOTH THE 10 MCG AND 20 MCG PEN AT THE SAME TIME
     Route: 058
  15. LEVOTHYROXINE. [Concomitant]
     Active Substance: LEVOTHYROXINE
     Indication: HYPOTHYROIDISM
  16. LISINOPRIL. [Concomitant]
     Active Substance: LISINOPRIL
     Indication: HYPERTENSION

REACTIONS (9)
  - Decreased appetite [Recovered/Resolved]
  - Weight decreased [Recovered/Resolved]
  - Off label use [Unknown]
  - Dyspepsia [Recovered/Resolved]
  - Malaise [Recovered/Resolved]
  - Intentional product misuse [Unknown]
  - Loss of consciousness [Unknown]
  - Nasopharyngitis [Unknown]
  - Constipation [Unknown]

NARRATIVE: CASE EVENT DATE: 201508
